FAERS Safety Report 6542063-3 (Version None)
Quarter: 2010Q1

REPORT INFORMATION
  Report Type: 
  Country: None (occurrence: None)
  Receive Date: 20100119
  Receipt Date: 20100108
  Transmission Date: 20100710
  Serious: Yes (Other)
  Sender: FDA-Public Use
  Company Number: GB-ELI_LILLY_AND_COMPANY-GB201001001555

PATIENT
  Age: 78 Year
  Sex: Male

DRUGS (2)
  1. TADALAFIL [Suspect]
     Indication: DRUG USE FOR UNKNOWN INDICATION
     Dosage: 10 MG, AS NEEDED
  2. TADALAFIL [Suspect]
     Dosage: 20 MG, AS NEEDED

REACTIONS (3)
  - BLADDER DISORDER [None]
  - DRUG INEFFECTIVE [None]
  - PROSTATE CANCER [None]
